FAERS Safety Report 5909917-X (Version None)
Quarter: 2008Q4

REPORT INFORMATION
  Report Type: 
  Country: None (occurrence: None)
  Receive Date: 20081006
  Receipt Date: 20081006
  Transmission Date: 20090506
  Serious: No
  Sender: FDA-Public Use
  Company Number: None

PATIENT

DRUGS (1)
  1. OMNISCAN [Suspect]

REACTIONS (4)
  - ARTHRALGIA [None]
  - MEDICATION ERROR [None]
  - NEPHROGENIC SYSTEMIC FIBROSIS [None]
  - RENAL CYST [None]
